FAERS Safety Report 9098710 (Version 2)
Quarter: 2013Q1

REPORT INFORMATION
  Report Type: Spontaneous
  Country: JP (occurrence: JP)
  Receive Date: 20130213
  Receipt Date: 20130221
  Transmission Date: 20140127
  Serious: Yes (Other)
  Sender: FDA-Public Use
  Company Number: JP-PFIZER INC-2013056827

PATIENT
  Age: 80 Year
  Sex: Male

DRUGS (3)
  1. CARDENALIN [Suspect]
     Dosage: 2 MG, DAILY
     Route: 048
     Dates: start: 20130109
  2. AMLODIPINE [Concomitant]
     Dosage: UNK
     Route: 048
  3. NU LOTAN [Concomitant]
     Dosage: UNK
     Route: 048

REACTIONS (2)
  - Cerebral infarction [Unknown]
  - Visual impairment [Unknown]
